FAERS Safety Report 11044257 (Version 1)
Quarter: 2015Q2

REPORT INFORMATION
  Report Type: Spontaneous
  Country: US (occurrence: US)
  Receive Date: 20150417
  Receipt Date: 20150417
  Transmission Date: 20150821
  Serious: No
  Sender: FDA-Public Use
  Company Number: US-PFIZER INC-2015129914

PATIENT
  Age: 51 Year
  Sex: Female

DRUGS (7)
  1. LEVAQUIN [Suspect]
     Active Substance: LEVOFLOXACIN
  2. LYRICA [Suspect]
     Active Substance: PREGABALIN
  3. ZOCOR [Suspect]
     Active Substance: SIMVASTATIN
  4. TYLENOL [Suspect]
     Active Substance: ACETAMINOPHEN
  5. CLINDAMYCIN HCL [Suspect]
     Active Substance: CLINDAMYCIN HYDROCHLORIDE
  6. NEXIUM [Suspect]
     Active Substance: ESOMEPRAZOLE MAGNESIUM
  7. LODRANE D [Suspect]
     Active Substance: BROMPHENIRAMINE MALEATE\PSEUDOEPHEDRINE HYDROCHLORIDE

REACTIONS (1)
  - Drug hypersensitivity [Unknown]
